FAERS Safety Report 5982189-6 (Version None)
Quarter: 2008Q4

REPORT INFORMATION
  Report Type: 
  Country: None (occurrence: None)
  Receive Date: 20081208
  Receipt Date: 20081129
  Transmission Date: 20090506
  Serious: No
  Sender: FDA-Public Use
  Company Number: FR-JNJFOC-20081200054

PATIENT
  Age: 54 Year
  Sex: Female

DRUGS (2)
  1. DURAGESIC-100 [Suspect]
     Dosage: 2 PATCHS: 100 + 25
     Route: 062
  2. DURAGESIC-100 [Suspect]
     Indication: CANCER PAIN
     Dosage: 2 PATCHS : 100 + 25
     Route: 062

REACTIONS (2)
  - DRUG PRESCRIBING ERROR [None]
  - PRODUCT QUALITY ISSUE [None]
